FAERS Safety Report 19212922 (Version 1)
Quarter: 2021Q2

REPORT INFORMATION
  Report Type: Spontaneous
  Country: RS (occurrence: RS)
  Receive Date: 20210504
  Receipt Date: 20210504
  Transmission Date: 20210717
  Serious: Yes (Other)
  Sender: FDA-Public Use
  Company Number: NVSC2021RS091560

PATIENT
  Sex: Male

DRUGS (9)
  1. VOTRIENT [Suspect]
     Active Substance: PAZOPANIB HYDROCHLORIDE
     Indication: METASTATIC RENAL CELL CARCINOMA
     Dosage: 800 MG
     Route: 065
     Dates: start: 20170616
  2. VOTRIENT [Suspect]
     Active Substance: PAZOPANIB HYDROCHLORIDE
     Dosage: UNK (45TH CYCLE)
     Route: 065
     Dates: start: 20210329
  3. VOTRIENT [Suspect]
     Active Substance: PAZOPANIB HYDROCHLORIDE
     Dosage: UNK (16TH CYCLE)
     Route: 065
     Dates: start: 2018
  4. VOTRIENT [Suspect]
     Active Substance: PAZOPANIB HYDROCHLORIDE
     Dosage: UNK (7TH CYCLE)
     Route: 065
     Dates: start: 2018
  5. VOTRIENT [Suspect]
     Active Substance: PAZOPANIB HYDROCHLORIDE
     Dosage: UNK (25TH CYCLE)
     Route: 065
     Dates: start: 2019
  6. VOTRIENT [Suspect]
     Active Substance: PAZOPANIB HYDROCHLORIDE
     Dosage: UNK (28TH CYCLE)
     Route: 065
     Dates: start: 2019
  7. VOTRIENT [Suspect]
     Active Substance: PAZOPANIB HYDROCHLORIDE
     Dosage: UNK (4TH CYCLE)
     Route: 065
     Dates: start: 2017
  8. VOTRIENT [Suspect]
     Active Substance: PAZOPANIB HYDROCHLORIDE
     Dosage: UNK (6TH CYCLE)
     Route: 065
     Dates: start: 2017
  9. VOTRIENT [Suspect]
     Active Substance: PAZOPANIB HYDROCHLORIDE
     Dosage: UNK (9TH CYCLE)
     Route: 065
     Dates: start: 2018

REACTIONS (7)
  - Stomatitis [Unknown]
  - Skin depigmentation [Unknown]
  - Taste disorder [Unknown]
  - Rash [Unknown]
  - Hypertension [Unknown]
  - Pleural effusion [Recovered/Resolved]
  - Photosensitivity reaction [Unknown]

NARRATIVE: CASE EVENT DATE: 2017
